FAERS Safety Report 6956823-8 (Version None)
Quarter: 2010Q3

REPORT INFORMATION
  Report Type: 
  Country: None (occurrence: None)
  Receive Date: 20100826
  Receipt Date: 20100820
  Transmission Date: 20110219
  Serious: Yes (Hospitalization)
  Sender: FDA-Public Use
  Company Number: IDA-00413

PATIENT
  Age: 65 Year
  Sex: Female

DRUGS (7)
  1. PROPRANOLOL [Suspect]
     Dosage: ORAL FORMATION
     Route: 048
     Dates: start: 20100727
  2. DILTIAZEM [Suspect]
     Dosage: ORAL FORMATION
     Route: 048
     Dates: start: 20100727
  3. MIDAZOLAM HCL [Suspect]
     Dosage: ORAL FORMATION
     Route: 048
     Dates: start: 20100727
  4. CRESTOR [Concomitant]
  5. METFORMIN [Concomitant]
  6. PROPOFAM [Concomitant]
  7. ACETAMINOPHEN [Concomitant]

REACTIONS (2)
  - CARDIOGENIC SHOCK [None]
  - POISONING DELIBERATE [None]
